FAERS Safety Report 9178534 (Version 1)
Quarter: 2013Q1

REPORT INFORMATION
  Report Type: Spontaneous
  Country: US (occurrence: US)
  Receive Date: 20130321
  Receipt Date: 20130321
  Transmission Date: 20140127
  Serious: Yes (Hospitalization)
  Sender: FDA-Public Use
  Company Number: US-BAYER-2013-033252

PATIENT
  Age: 44 Year
  Sex: Female
  Weight: 85.26 kg

DRUGS (5)
  1. YASMIN [Suspect]
  2. OCELLA [Suspect]
  3. IBUPROFEN [Concomitant]
     Dosage: 800 2 TIMES
  4. NORCO [Concomitant]
     Indication: PAIN
  5. LEVAQUIN [Concomitant]
     Dosage: 750 MG, UNK
     Route: 048

REACTIONS (1)
  - Pulmonary embolism [None]
